FAERS Safety Report 25019799 (Version 3)
Quarter: 2025Q1

REPORT INFORMATION
  Report Type: Spontaneous
  Country: JP (occurrence: JP)
  Receive Date: 20250227
  Receipt Date: 20250320
  Transmission Date: 20250408
  Serious: Yes (Hospitalization)
  Sender: PFIZER
  Company Number: JP-PFIZER INC-PV202500023689

PATIENT
  Age: 63 Year
  Sex: Female
  Weight: 66.5 kg

DRUGS (4)
  1. ELREXFIO [Suspect]
     Active Substance: ELRANATAMAB-BCMM
     Indication: Plasma cell myeloma
     Dosage: 12 MG, DAILY
     Route: 058
     Dates: start: 20240910, end: 20240910
  2. ELREXFIO [Suspect]
     Active Substance: ELRANATAMAB-BCMM
     Dosage: 32 MG, DAILY
     Route: 058
     Dates: start: 20240916, end: 20240916
  3. ELREXFIO [Suspect]
     Active Substance: ELRANATAMAB-BCMM
     Dosage: 76 MG, DAILY
     Route: 058
     Dates: start: 20240920, end: 20240920
  4. ELREXFIO [Suspect]
     Active Substance: ELRANATAMAB-BCMM
     Route: 058
     Dates: end: 202501

REACTIONS (6)
  - Cytomegalovirus chorioretinitis [Not Recovered/Not Resolved]
  - Vision blurred [Not Recovered/Not Resolved]
  - Visual acuity reduced [Not Recovered/Not Resolved]
  - Pneumonia fungal [Recovering/Resolving]
  - Pyrexia [Recovered/Resolved]
  - Off label use [Unknown]

NARRATIVE: CASE EVENT DATE: 20240916
